FAERS Safety Report 24440802 (Version 1)
Quarter: 2024Q4

REPORT INFORMATION
  Report Type: Spontaneous
  Country: US (occurrence: US)
  Receive Date: 20241016
  Receipt Date: 20241016
  Transmission Date: 20250115
  Serious: Yes (Other)
  Sender: AUROBINDO
  Company Number: US-AUROBINDO-AUR-APL-2024-049853

PATIENT
  Age: 63 Year
  Sex: Male

DRUGS (2)
  1. SEVELAMER CARBONATE [Suspect]
     Active Substance: SEVELAMER CARBONATE
     Indication: Tumour lysis syndrome
     Dosage: UNK
     Route: 065
  2. RASBURICASE [Suspect]
     Active Substance: RASBURICASE
     Indication: Tumour lysis syndrome
     Dosage: UNK
     Route: 042

REACTIONS (1)
  - Drug ineffective [Unknown]
